FAERS Safety Report 21659699 (Version 1)
Quarter: 2022Q4

REPORT INFORMATION
  Report Type: Spontaneous
  Country: US (occurrence: None)
  Receive Date: 20221129
  Receipt Date: 20221129
  Transmission Date: 20230113
  Serious: Yes (Other)
  Sender: FDA-Public Use
  Company Number: 2022A386786

PATIENT
  Age: 946 Month
  Sex: Male
  Weight: 93.4 kg

DRUGS (1)
  1. FARXIGA [Suspect]
     Active Substance: DAPAGLIFLOZIN PROPANEDIOL
     Indication: Renal disorder
     Route: 048
     Dates: start: 202207

REACTIONS (5)
  - Renal impairment [Unknown]
  - Weight decreased [Unknown]
  - Blood glucose decreased [Unknown]
  - Hypoaesthesia [Unknown]
  - Glycosylated haemoglobin increased [Unknown]

NARRATIVE: CASE EVENT DATE: 20220701
